FAERS Safety Report 9997951 (Version 1)
Quarter: 2014Q1

REPORT INFORMATION
  Report Type: Spontaneous
  Country: US (occurrence: US)
  Receive Date: 20140311
  Receipt Date: 20140311
  Transmission Date: 20141002
  Serious: No
  Sender: FDA-Public Use
  Company Number: US-ROXANE LABORATORIES, INC.-2014-RO-00375RO

PATIENT
  Sex: Female

DRUGS (10)
  1. DEXAMETHASONE [Suspect]
     Indication: PROPHYLAXIS OF NAUSEA AND VOMITING
     Route: 048
     Dates: start: 20140128, end: 20140129
  2. DEXAMETHASONE [Suspect]
     Route: 048
     Dates: start: 20140305, end: 20140305
  3. ADRIAMYCIN [Concomitant]
     Indication: BREAST CANCER
     Route: 065
  4. CYTOXAN [Concomitant]
     Indication: BREAST CANCER
     Route: 065
  5. EMEND [Concomitant]
     Route: 065
  6. ONDANSETRON [Concomitant]
     Route: 065
  7. FILGRASTIM [Concomitant]
     Route: 065
  8. PRILOSEC [Concomitant]
     Indication: GASTROOESOPHAGEAL REFLUX DISEASE
     Route: 065
  9. PROAIR [Concomitant]
     Route: 055
  10. LORATIN [Concomitant]
     Indication: MULTIPLE ALLERGIES
     Route: 065

REACTIONS (4)
  - Energy increased [Recovered/Resolved]
  - Sleep disorder [Recovered/Resolved]
  - Hypoaesthesia [Unknown]
  - Peripheral coldness [Unknown]
